FAERS Safety Report 8417206-7 (Version None)
Quarter: 2012Q2

REPORT INFORMATION
  Report Type: 
  Country: None (occurrence: None)
  Receive Date: 20120606
  Receipt Date: 20120530
  Transmission Date: 20120825
  Serious: Yes (Hospitalization, Other)
  Sender: FDA-Public Use
  Company Number: CA-UCBSA-057632

PATIENT
  Age: 58 Year
  Sex: Female
  Weight: 73.8 kg

DRUGS (6)
  1. ARAVA [Concomitant]
     Indication: RHEUMATOID ARTHRITIS
     Route: 048
     Dates: start: 20110101
  2. CIMZIA [Suspect]
     Indication: RHEUMATOID ARTHRITIS
     Route: 058
     Dates: start: 20120418, end: 20120501
  3. DICLOFENAC SODIUM [Concomitant]
     Indication: GASTROOESOPHAGEAL REFLUX DISEASE
     Route: 048
  4. METHOTREXATE [Concomitant]
     Indication: RHEUMATOID ARTHRITIS
     Route: 058
     Dates: start: 20110301, end: 20120501
  5. DILTIAZEM [Concomitant]
     Indication: HYPERTENSION
     Route: 048
  6. ATACAND [Concomitant]
     Indication: HYPERTENSION
     Route: 048

REACTIONS (4)
  - MUSCULAR WEAKNESS [None]
  - LUNG INFECTION [None]
  - ANAEMIA [None]
  - DYSPNOEA [None]
